FAERS Safety Report 17910375 (Version 1)
Quarter: 2020Q2

REPORT INFORMATION
  Report Type: Spontaneous
  Country: US (occurrence: US)
  Receive Date: 20200617
  Receipt Date: 20200617
  Transmission Date: 20200714
  Serious: No
  Sender: FDA-Public Use
  Company Number: US-BAXTER-2020BAX012196

PATIENT
  Sex: Female

DRUGS (1)
  1. PENICILLIN G POTASSIUM INJECTION, USP [Suspect]
     Active Substance: PENICILLIN G POTASSIUM
     Indication: PRODUCT USED FOR UNKNOWN INDICATION
     Dosage: (3 MILLION UNITS IN 50 ML
     Route: 065

REACTIONS (3)
  - Infusion site pain [Unknown]
  - Exposure during pregnancy [Unknown]
  - Incorrect drug administration rate [Unknown]
